FAERS Safety Report 8512229 (Version 4)
Quarter: 2012Q4

REPORT INFORMATION
  Report Type: 
  Country: US (occurrence: US)
  Receive Date: 20120413
  Receipt Date: 20121015
  Transmission Date: 20130627
  Serious: Yes (Other)
  Sender: FDA-Public Use
  Company Number: US-ASTRAZENECA-2011SE36143

PATIENT
  Age: 90 Year
  Sex: Female
  Weight: 61.7 kg

DRUGS (3)
  1. NEXIUM [Suspect]
     Indication: GASTROOESOPHAGEAL REFLUX DISEASE
     Route: 048
     Dates: start: 2005
  2. TOPROL XL [Suspect]
     Indication: CARDIAC DISORDER
     Route: 048
  3. LIST OF MEDICATIONS [Concomitant]

REACTIONS (6)
  - Squamous cell carcinoma [Unknown]
  - Fall [Unknown]
  - Pelvic fracture [Unknown]
  - Skin cancer [Unknown]
  - Mental disorder [Unknown]
  - Memory impairment [Unknown]
